FAERS Safety Report 9828461 (Version 2)
Quarter: 2014Q1

REPORT INFORMATION
  Report Type: Spontaneous
  Country: DK (occurrence: AU)
  Receive Date: 20140117
  Receipt Date: 20140213
  Transmission Date: 20141002
  Serious: Yes (Other)
  Sender: FDA-Public Use
  Company Number: AU-FRI-1000052922

PATIENT
  Age: 46 Year
  Sex: Female

DRUGS (5)
  1. ESCITALOPRAM [Suspect]
  2. CLOPINE [Suspect]
     Indication: BIPOLAR DISORDER
     Dosage: 250 MG
     Route: 048
     Dates: start: 20101224
  3. DIAZEPAM [Suspect]
  4. LEVETIRACETAM [Suspect]
  5. RISPERIDONE [Suspect]

REACTIONS (5)
  - Renal impairment [Recovered/Resolved]
  - Weight increased [Unknown]
  - Hepatic function abnormal [Unknown]
  - Hepatic steatosis [Unknown]
  - Diabetes mellitus [Unknown]
